FAERS Safety Report 9012898 (Version 1)
Quarter: 2013Q1

REPORT INFORMATION
  Report Type: Spontaneous
  Country: US (occurrence: US)
  Receive Date: 20130114
  Receipt Date: 20130114
  Transmission Date: 20140127
  Serious: Yes (Other)
  Sender: FDA-Public Use
  Company Number: US-009507513-1301USA004169

PATIENT
  Age: 55 Year
  Sex: Female

DRUGS (8)
  1. SINGULAIR [Suspect]
  2. OMNARIS [Suspect]
     Dosage: 200 MG,PRN
  3. OMNARIS [Suspect]
     Dosage: 200 MG, QD
     Route: 048
  4. DIOVAN [Suspect]
     Route: 065
  5. VITAMINS (UNSPECIFIED) [Concomitant]
     Indication: COUGH
  6. CELEXA [Concomitant]
     Indication: HYPERTENSION
  7. XOPENEX [Concomitant]
  8. LISINOPRIL [Concomitant]
     Route: 065

REACTIONS (2)
  - Tinnitus [Unknown]
  - Deafness unilateral [Unknown]
